FAERS Safety Report 18323770 (Version 2)
Quarter: 2020Q4

REPORT INFORMATION
  Report Type: Spontaneous
  Country: JP (occurrence: JP)
  Receive Date: 20200928
  Receipt Date: 20201007
  Transmission Date: 20210113
  Serious: Yes (Other)
  Sender: FDA-Public Use
  Company Number: JP-PFIZER INC-2020367373

PATIENT
  Age: 86 Year

DRUGS (2)
  1. LUPRAC [Suspect]
     Active Substance: TORSEMIDE
     Dosage: UNK
     Dates: start: 20200527
  2. LYRICA [Suspect]
     Active Substance: PREGABALIN
     Dosage: UNK
     Route: 048
     Dates: start: 20200108

REACTIONS (3)
  - Palpitations [Unknown]
  - Cardiac failure [Unknown]
  - Pulmonary oedema [Unknown]
